FAERS Safety Report 9558798 (Version 1)
Quarter: 2013Q3

REPORT INFORMATION
  Report Type: Spontaneous
  Country: US (occurrence: US)
  Receive Date: 20130926
  Receipt Date: 20130926
  Transmission Date: 20140515
  Serious: Yes (Other)
  Sender: FDA-Public Use
  Company Number: US-RB-058665-13

PATIENT
  Age: 35 Year
  Sex: Female

DRUGS (3)
  1. SUBOXONE FILM [Suspect]
     Indication: DRUG DEPENDENCE
     Dosage: SUBOXONE FILM; DOSING DETAILS UNKNOWN; THE PATIENT^S DOSE DEPENDED ON AVAILABILITY
     Route: 060
  2. GENERIC BUPRENORPHINE [Suspect]
     Indication: DRUG DEPENDENCE
     Dosage: DOSING DETAILS UNKNOWN; THE PATIENT^S DOSE DEPENDED ON AVAILABILITY
     Route: 060
  3. XANAX [Suspect]
     Indication: ANXIETY
     Dosage: DOSING DETAILS UNKNOWN; THE PATIENT WAS TAKING XANAX DAILY
     Route: 048

REACTIONS (4)
  - Convulsion [Recovered/Resolved]
  - Hallucination [Recovered/Resolved]
  - Substance abuse [Not Recovered/Not Resolved]
  - Nausea [Not Recovered/Not Resolved]
